FAERS Safety Report 4798888-8 (Version None)
Quarter: 2005Q4

REPORT INFORMATION
  Report Type: 
  Country: None (occurrence: None)
  Receive Date: 20051014
  Receipt Date: 20050929
  Transmission Date: 20060501
  Serious: Yes (Other)
  Sender: FDA-Public Use
  Company Number: PHBS2005JP14345

PATIENT
  Age: 28 Year
  Sex: Male

DRUGS (11)
  1. SANDIMMUNE [Suspect]
     Indication: BONE MARROW TRANSPLANT
     Dosage: 1.5 MG/KG, BID
     Route: 041
     Dates: start: 20050825, end: 20050913
  2. CYCLOPHOSPHAMIDE [Concomitant]
     Dosage: 60 MG/KG, BID
  3. IRRADIATION [Concomitant]
  4. STEROIDS NOS [Concomitant]
     Indication: GRAFT VERSUS HOST DISEASE
     Dosage: 70 MG/DAY (1 MG/KG/D)
     Dates: start: 20050904
  5. STEROIDS NOS [Concomitant]
     Dosage: 125 MG/D
     Dates: start: 20050914
  6. DIOVAN [Concomitant]
     Dates: start: 20050908
  7. AMLODIPINE BESYLATE [Concomitant]
     Indication: HYPERTENSION
     Dates: start: 20050912
  8. CERCINE [Suspect]
     Indication: INSOMNIA
  9. SERENACE [Suspect]
     Indication: INSOMNIA
  10. DIPRIVAN [Suspect]
     Indication: INSOMNIA
  11. NICARDIPINE HCL [Concomitant]
     Indication: HYPERTENSION

REACTIONS (17)
  - BLOOD PRESSURE INCREASED [None]
  - CONVULSION [None]
  - DIALYSIS [None]
  - GRAFT VERSUS HOST DISEASE [None]
  - HEADACHE [None]
  - HYPERCAPNIA [None]
  - INSOMNIA [None]
  - LIFE SUPPORT [None]
  - NEUROLEPTIC MALIGNANT SYNDROME [None]
  - PRURITUS [None]
  - PYREXIA [None]
  - RASH GENERALISED [None]
  - RENAL FAILURE [None]
  - RESPIRATORY DEPRESSION [None]
  - TOXIC INDUCED ENCEPHALOPATHY [None]
  - TREMOR [None]
  - VISUAL ACUITY REDUCED [None]
